FAERS Safety Report 18832411 (Version 1)
Quarter: 2021Q1

REPORT INFORMATION
  Report Type: Spontaneous
  Country: US (occurrence: US)
  Receive Date: 20210203
  Receipt Date: 20210203
  Transmission Date: 20210419
  Serious: No
  Sender: FDA-Public Use
  Company Number: US-ALLERGAN-2032645US

PATIENT
  Age: 54 Year
  Sex: Female

DRUGS (5)
  1. JUVEDERM ULTRA [Suspect]
     Active Substance: HYALURONIC ACID
     Indication: DERMAL FILLER INJECTION
     Dosage: UNK, SINGLE
     Dates: start: 20200724, end: 20200724
  2. PROGESTERONE. [Concomitant]
     Active Substance: PROGESTERONE
  3. BOTOX COSMETIC [Suspect]
     Active Substance: ONABOTULINUMTOXINA
     Indication: BRUXISM
     Dosage: 40 UNITS, SINGLE
     Dates: start: 20200728, end: 20200728
  4. BOTOX COSMETIC [Suspect]
     Active Substance: ONABOTULINUMTOXINA
     Indication: MUSCLE HYPERTROPHY
  5. JUVEDERM VOLBELLA [Suspect]
     Active Substance: HYALURONIC ACID
     Indication: DERMAL FILLER INJECTION
     Dosage: UNK, SINGLE
     Dates: start: 20200728, end: 20200728

REACTIONS (6)
  - Vertigo [Recovering/Resolving]
  - Deformity [Not Recovered/Not Resolved]
  - Off label use [Unknown]
  - Facial paresis [Recovering/Resolving]
  - Swelling face [Recovering/Resolving]
  - Dermal filler overcorrection [Not Recovered/Not Resolved]

NARRATIVE: CASE EVENT DATE: 202007
